FAERS Safety Report 20369531 (Version 1)
Quarter: 2022Q1

REPORT INFORMATION
  Report Type: Report from Study
  Country: AU (occurrence: None)
  Receive Date: 20220124
  Receipt Date: 20220124
  Transmission Date: 20220424
  Serious: Yes (Hospitalization)
  Sender: FDA-Public Use
  Company Number: 2022A031297

PATIENT
  Sex: Male

DRUGS (1)
  1. DAPAGLIFLOZIN [Suspect]
     Active Substance: DAPAGLIFLOZIN
     Indication: Cardiac failure
     Route: 048

REACTIONS (6)
  - Loss of consciousness [Unknown]
  - Fluid retention [Unknown]
  - Dyspnoea [Unknown]
  - Dizziness [Unknown]
  - Blood pressure decreased [Unknown]
  - Heart rate decreased [Unknown]
